FAERS Safety Report 10857770 (Version 2)
Quarter: 2015Q1

REPORT INFORMATION
  Report Type: Spontaneous
  Country: IT (occurrence: ZA)
  Receive Date: 20150223
  Receipt Date: 20150304
  Transmission Date: 20150721
  Serious: Yes (Other)
  Sender: FDA-Public Use
  Company Number: ZA-FRI-1000074661

PATIENT
  Age: 60 Year
  Sex: Female

DRUGS (3)
  1. CIPROBAY [Concomitant]
     Active Substance: CIPROFLOXACIN
  2. URISPAS [Suspect]
     Active Substance: FLAVOXATE HYDROCHLORIDE
     Indication: URINARY TRACT INFECTION
     Dosage: 200 MG, SINGLE
     Route: 048
     Dates: start: 20150119, end: 20150119
  3. FOSFOMYCIN [Suspect]
     Active Substance: FOSFOMYCIN
     Indication: URINARY TRACT INFECTION
     Route: 048

REACTIONS (2)
  - Palpitations [Recovered/Resolved]
  - Tachycardia [Recovered/Resolved]

NARRATIVE: CASE EVENT DATE: 20150119
